FAERS Safety Report 10534259 (Version 7)
Quarter: 2015Q4

REPORT INFORMATION
  Report Type: Report from Study
  Country: JP (occurrence: JP)
  Receive Date: 20141022
  Receipt Date: 20151103
  Transmission Date: 20160304
  Serious: Yes (Life-Threatening, Hospitalization)
  Sender: FDA-Public Use
  Company Number: JP-PFIZER INC-2014285297

PATIENT
  Age: 58 Year
  Sex: Female
  Weight: 49.2 kg

DRUGS (7)
  1. XALKORI [Suspect]
     Active Substance: CRIZOTINIB
     Dosage: 200 MG, 2X/DAY
     Route: 048
     Dates: start: 20131121, end: 20131123
  2. LIVALO [Concomitant]
     Active Substance: PITAVASTATIN CALCIUM
     Dosage: 1 MG, 1X/DAY
     Route: 048
     Dates: end: 20131126
  3. XALKORI [Suspect]
     Active Substance: CRIZOTINIB
     Indication: NON-SMALL CELL LUNG CANCER
     Dosage: 250 MG, 2X/DAY
     Route: 048
     Dates: start: 20131029, end: 20131120
  4. GLIMICRON [Concomitant]
     Active Substance: GLICLAZIDE
     Dosage: 20 MG, 1X/DAY
     Route: 048
     Dates: end: 20131126
  5. SEIBULE [Concomitant]
     Active Substance: MIGLITOL
     Dosage: 50 MG, 2X/DAY
     Route: 048
     Dates: end: 20131126
  6. ACINON [Concomitant]
     Active Substance: NIZATIDINE
     Dosage: 150 MG, 1X/DAY
     Route: 048
     Dates: end: 20131126
  7. NAUZELIN [Concomitant]
     Active Substance: DOMPERIDONE
     Dosage: 10 MG, 3X/DAY
     Route: 048
     Dates: start: 20131029, end: 20131107

REACTIONS (2)
  - Pseudomembranous colitis [Recovered/Resolved]
  - Interstitial lung disease [Recovered/Resolved]

NARRATIVE: CASE EVENT DATE: 20131122
